FAERS Safety Report 13522352 (Version 1)
Quarter: 2017Q2

REPORT INFORMATION
  Report Type: Spontaneous
  Country: US (occurrence: US)
  Receive Date: 20170508
  Receipt Date: 20170508
  Transmission Date: 20170830
  Serious: Yes (Other)
  Sender: FDA-Public Use
  Company Number: None

PATIENT
  Age: 20 Year
  Sex: Male

DRUGS (8)
  1. CLARITIN [Concomitant]
     Active Substance: LORATADINE
  2. REXULTI [Suspect]
     Active Substance: BREXPIPRAZOLE
     Indication: DEPRESSION
     Dosage: ?          QUANTITY:1 TABLET(S);?
     Route: 048
     Dates: start: 20170505, end: 20170506
  3. RANITIDINE. [Concomitant]
     Active Substance: RANITIDINE
  4. CLONAZEPAM. [Concomitant]
     Active Substance: CLONAZEPAM
  5. BENADRYL [Concomitant]
     Active Substance: DIPHENHYDRAMINE HYDROCHLORIDE
  6. VITAMIN B12 [Concomitant]
     Active Substance: CYANOCOBALAMIN
  7. ASCORBIC ACID (VITAMIN C) [Concomitant]
     Active Substance: ASCORBIC ACID
  8. VITAMIN D3 [Concomitant]
     Active Substance: CHOLECALCIFEROL

REACTIONS (7)
  - Mania [None]
  - Panic attack [None]
  - Nervousness [None]
  - Anxiety [None]
  - Agitation [None]
  - Verbal abuse [None]
  - Suicidal ideation [None]

NARRATIVE: CASE EVENT DATE: 20170506
